FAERS Safety Report 23976840 (Version 1)
Quarter: 2024Q2

REPORT INFORMATION
  Report Type: Report from Study
  Country: US (occurrence: US)
  Receive Date: 20240614
  Receipt Date: 20240614
  Transmission Date: 20240716
  Serious: Yes (Other)
  Sender: FDA-Public Use
  Company Number: US-SUN PHARMACEUTICAL INDUSTRIES LTD-2024R1-451227

PATIENT
  Age: 60 Year
  Sex: Female

DRUGS (1)
  1. HYDROXYCHLOROQUINE [Suspect]
     Active Substance: HYDROXYCHLOROQUINE
     Indication: Rheumatoid arthritis
     Dosage: 400 MILLIGRAM, DAILY
     Route: 065

REACTIONS (6)
  - Cardiotoxicity [Unknown]
  - Fibrosis [Unknown]
  - Gadolinium deposition disease [Unknown]
  - Hypertrophy [Unknown]
  - Red blood cell vacuolisation [Unknown]
  - Ventricular internal diameter abnormal [Unknown]
